FAERS Safety Report 11130081 (Version 1)
Quarter: 2015Q2

REPORT INFORMATION
  Report Type: Spontaneous
  Country: US (occurrence: JP)
  Receive Date: 20150521
  Receipt Date: 20150521
  Transmission Date: 20150821
  Serious: Yes (Death, Hospitalization, Other)
  Sender: FDA-Public Use
  Company Number: US-009507513-1505JPN008007

PATIENT
  Age: 76 Year
  Sex: Male

DRUGS (2)
  1. THIABENDAZOLE [Suspect]
     Active Substance: THIABENDAZOLE
     Indication: STRONGYLOIDIASIS
     Dosage: UNK
     Route: 048
  2. CEFTRIAXONE SODIUM. [Suspect]
     Active Substance: CEFTRIAXONE SODIUM
     Indication: STRONGYLOIDIASIS
     Dosage: UNK

REACTIONS (2)
  - No therapeutic response [Unknown]
  - Meningitis [Fatal]
